FAERS Safety Report 4727841-5 (Version None)
Quarter: 2005Q3

REPORT INFORMATION
  Report Type: 
  Country: None (occurrence: None)
  Receive Date: 20050728
  Receipt Date: 20050428
  Transmission Date: 20060218
  Serious: Yes (Hospitalization)
  Sender: FDA-Public Use
  Company Number: US-MERCK-0505USA00234

PATIENT
  Age: 78 Year
  Sex: Male
  Weight: 95 kg

DRUGS (14)
  1. VIOXX [Suspect]
     Indication: PAIN IN EXTREMITY
     Route: 048
     Dates: start: 20021206, end: 20040701
  2. VIOXX [Suspect]
     Route: 048
     Dates: start: 20010820, end: 20021206
  3. VIOXX [Suspect]
     Indication: OSTEOARTHRITIS
     Route: 048
     Dates: start: 20021206, end: 20040701
  4. VIOXX [Suspect]
     Route: 048
     Dates: start: 20010820, end: 20021206
  5. PRINIVIL [Suspect]
     Indication: HYPERTENSION
     Route: 048
     Dates: end: 20050401
  6. ZOCOR [Concomitant]
     Indication: BLOOD CHOLESTEROL INCREASED
     Route: 048
     Dates: start: 20030101
  7. ACETAMINOPHEN AND PROPOXYPHENE NAPSYLATE [Concomitant]
     Indication: ARTHRITIS
     Route: 065
  8. ACETAMINOPHEN AND PROPOXYPHENE NAPSYLATE [Concomitant]
     Indication: GOUT
     Route: 065
  9. ALLOPURINOL [Concomitant]
     Indication: ARTHRITIS
     Route: 048
  10. ALLOPURINOL [Concomitant]
     Indication: GOUT
     Route: 048
  11. INDOMETHACIN [Concomitant]
     Indication: ARTHRITIS
     Route: 048
     Dates: start: 20030401
  12. INDOMETHACIN [Concomitant]
     Indication: GOUT
     Route: 048
     Dates: start: 20030401
  13. LIDOCAINE [Concomitant]
     Route: 065
  14. SULINDAC [Suspect]
     Route: 048

REACTIONS (24)
  - ANAEMIA [None]
  - ANGINA PECTORIS [None]
  - ARRHYTHMIA [None]
  - ASTHENIA [None]
  - CHEST DISCOMFORT [None]
  - COMMUNICATION DISORDER [None]
  - CORONARY ARTERY ATHEROSCLEROSIS [None]
  - COUGH [None]
  - DIZZINESS [None]
  - DRUG ADMINISTRATION ERROR [None]
  - DRUG INTERACTION [None]
  - FALL [None]
  - GOUTY ARTHRITIS [None]
  - HEADACHE [None]
  - HYPERTENSION [None]
  - LOSS OF CONSCIOUSNESS [None]
  - NEUROPATHY PERIPHERAL [None]
  - PHLEBITIS SUPERFICIAL [None]
  - POSTNASAL DRIP [None]
  - RADICULOPATHY [None]
  - SPINAL COLUMN STENOSIS [None]
  - TRANSIENT ISCHAEMIC ATTACK [None]
  - TRIGGER FINGER [None]
  - URINARY TRACT INFECTION [None]
